FAERS Safety Report 9046973 (Version 1)
Quarter: 2013Q1

REPORT INFORMATION
  Report Type: Spontaneous
  Country: US (occurrence: None)
  Receive Date: 20130129
  Receipt Date: 20130129
  Transmission Date: 20140127
  Serious: No
  Sender: FDA-Public Use
  Company Number: None

PATIENT
  Age: 69 Year
  Sex: Male
  Weight: 81.65 kg

DRUGS (3)
  1. CYMBALTA 60MG LILLY USA, LLC [Suspect]
     Indication: BACK PAIN
     Route: 048
     Dates: start: 20120801, end: 20130103
  2. CYMBALTA 60MG LILLY USA, LLC [Suspect]
     Indication: ARTHRALGIA
     Route: 048
     Dates: start: 20120801, end: 20130103
  3. CYMBALTA 60MG LILLY USA, LLC [Suspect]
     Indication: AFFECTIVE DISORDER
     Route: 048
     Dates: start: 20120801, end: 20130103

REACTIONS (10)
  - Drug withdrawal syndrome [None]
  - Blood pressure systolic increased [None]
  - Headache [None]
  - Dizziness [None]
  - Photophobia [None]
  - Influenza like illness [None]
  - Photopsia [None]
  - Paraesthesia [None]
  - Mental disorder [None]
  - Impaired work ability [None]
